FAERS Safety Report 5161818-3 (Version None)
Quarter: 2006Q4

REPORT INFORMATION
  Report Type: 
  Country: None (occurrence: None)
  Receive Date: 20061130
  Receipt Date: 20060818
  Transmission Date: 20070319
  Serious: Yes (Death, Other)
  Sender: FDA-Public Use
  Company Number: US-ELI_LILLY_AND_COMPANY-US200608004241

PATIENT
  Age: 65 Year
  Sex: Male

DRUGS (3)
  1. XIGRIS [Suspect]
     Indication: SEPSIS
     Dosage: UNK, UNK
     Route: 042
     Dates: start: 20050818
  2. LEVOPHED [Concomitant]
     Indication: VASOPRESSIVE THERAPY
     Dates: start: 20050101
  3. NEOSYNEPHRINE [Concomitant]
     Indication: VASOPRESSIVE THERAPY
     Dates: start: 20050101

REACTIONS (3)
  - BLOOD PRESSURE DECREASED [None]
  - CARDIO-RESPIRATORY ARREST [None]
  - DEATH [None]
